FAERS Safety Report 13593820 (Version 1)
Quarter: 2017Q2

REPORT INFORMATION
  Report Type: Spontaneous
  Country: US (occurrence: US)
  Receive Date: 20170530
  Receipt Date: 20170530
  Transmission Date: 20170830
  Serious: Yes (Hospitalization)
  Sender: FDA-Public Use
  Company Number: US-BAYER-2017-096596

PATIENT
  Age: 64 Year
  Sex: Female

DRUGS (3)
  1. CIPROFLOXACIN. [Suspect]
     Active Substance: CIPROFLOXACIN
     Indication: URINARY TRACT INFECTION
  2. WARFARIN [Interacting]
     Active Substance: WARFARIN
     Indication: ATRIAL FIBRILLATION
  3. WARFARIN [Interacting]
     Active Substance: WARFARIN
     Indication: HEART VALVE OPERATION

REACTIONS (3)
  - Intra-abdominal haematoma [None]
  - Shock haemorrhagic [None]
  - Labelled drug-drug interaction medication error [None]
